FAERS Safety Report 17412219 (Version 1)
Quarter: 2020Q1

REPORT INFORMATION
  Report Type: Spontaneous
  Country: US (occurrence: US)
  Receive Date: 20200129
  Receipt Date: 20200129
  Transmission Date: 20200409
  Serious: No
  Sender: FDA-Public Use
  Company Number: None

PATIENT
  Age: 61 Year
  Sex: Male

DRUGS (1)
  1. EPCLUSA [Suspect]
     Active Substance: SOFOSBUVIR\VELPATASVIR
     Dosage: ?          OTHER DOSE:400MG-100MG;?
     Route: 048

REACTIONS (5)
  - Asthenia [None]
  - Joint stiffness [None]
  - Therapy cessation [None]
  - Pain [None]
  - Therapeutic procedure [None]

NARRATIVE: CASE EVENT DATE: 20191201
